FAERS Safety Report 8189176-0 (Version None)
Quarter: 2012Q1

REPORT INFORMATION
  Report Type: 
  Country: None (occurrence: None)
  Receive Date: 20120307
  Receipt Date: 20120228
  Transmission Date: 20120608
  Serious: Yes (Other)
  Sender: FDA-Public Use
  Company Number: US-SHIRE-ALL1-2012-01175

PATIENT
  Sex: Female
  Weight: 58.957 kg

DRUGS (3)
  1. VYVANSE [Suspect]
     Dosage: 60 MG, 1X/DAY:QD
     Route: 048
     Dates: start: 20110101, end: 20111201
  2. KLONOPIN [Concomitant]
     Indication: PANIC ATTACK
     Dosage: 1-3 MG, AS REQ'D
     Route: 048
  3. VYVANSE [Suspect]
     Indication: ATTENTION DEFICIT/HYPERACTIVITY DISORDER
     Dosage: 20 MG, 1X/DAY:QD
     Route: 048
     Dates: start: 20110101, end: 20110101

REACTIONS (4)
  - DISSOCIATIVE DISORDER [None]
  - FEELING ABNORMAL [None]
  - LOSS OF CONSCIOUSNESS [None]
  - ANXIETY [None]
